FAERS Safety Report 5340121-2 (Version None)
Quarter: 2007Q2

REPORT INFORMATION
  Report Type: 
  Country: None (occurrence: None)
  Receive Date: 20070525
  Receipt Date: 20070525
  Transmission Date: 20071010
  Serious: Yes (Hospitalization)
  Sender: FDA-Public Use
  Company Number: None

PATIENT
  Age: 77 Year
  Sex: Female
  Weight: 71 kg

DRUGS (12)
  1. ENOXAPARIN SODIUM [Suspect]
     Indication: THROMBOSIS PROPHYLAXIS
     Dosage: 30MG Q12H SQ
     Route: 058
  2. HEPARIN [Suspect]
     Indication: CEREBROVASCULAR ACCIDENT
     Dosage: 1105 UNITS PER HR IV
     Route: 042
     Dates: start: 20060109, end: 20060110
  3. HEPARIN [Suspect]
     Indication: EMBOLIC STROKE
     Dosage: 1105 UNITS PER HR IV
     Route: 042
     Dates: start: 20060109, end: 20060110
  4. WARFARIN SODIUM [Concomitant]
  5. DIGOXIN [Concomitant]
  6. DOCUSATE [Concomitant]
  7. LASIX [Concomitant]
  8. ATROVENT [Concomitant]
  9. POTASSIUM ACETATE [Concomitant]
  10. TRANDALOPRIL [Concomitant]
  11. VALSARTAN [Concomitant]
  12. VERAPAMIL [Concomitant]

REACTIONS (7)
  - GASTRIC ULCER [None]
  - GASTROINTESTINAL HAEMORRHAGE [None]
  - HYPOTENSION [None]
  - MYOCARDIAL INFARCTION [None]
  - PARAPLEGIA [None]
  - POST PROCEDURAL COMPLICATION [None]
  - SPINAL CORD ISCHAEMIA [None]
